FAERS Safety Report 6068253-4 (Version None)
Quarter: 2009Q1

REPORT INFORMATION
  Report Type: 
  Country: None (occurrence: None)
  Receive Date: 20090206
  Receipt Date: 20090123
  Transmission Date: 20090719
  Serious: Yes (Hospitalization)
  Sender: FDA-Public Use
  Company Number: PHHY2009CH02587

PATIENT
  Age: 14 Year
  Sex: Female

DRUGS (4)
  1. TORECAN [Suspect]
     Indication: NAUSEA
     Dosage: 19.5 MG/DAY
     Dates: start: 20081018, end: 20081019
  2. TORECAN [Suspect]
     Indication: VERTIGO
  3. PRIMPERAN TAB [Suspect]
     Indication: NAUSEA
     Dosage: 20 MG/DAY, ONCE
     Dates: start: 20081020
  4. PRIMPERAN TAB [Suspect]
     Indication: VERTIGO

REACTIONS (4)
  - EYE ROLLING [None]
  - HEADACHE [None]
  - MUSCLE RIGIDITY [None]
  - PAIN [None]
